FAERS Safety Report 11443363 (Version 2)
Quarter: 2015Q3

REPORT INFORMATION
  Report Type: Spontaneous
  Country: US (occurrence: US)
  Receive Date: 20150901
  Receipt Date: 20150904
  Transmission Date: 20151125
  Serious: Yes (Other)
  Sender: FDA-Public Use
  Company Number: PHEH2015US016662

PATIENT
  Age: 5 Year
  Sex: Male

DRUGS (1)
  1. TRILEPTAL [Suspect]
     Active Substance: OXCARBAZEPINE
     Indication: SEIZURE
     Route: 065

REACTIONS (6)
  - Eye movement disorder [Unknown]
  - Somnolence [Unknown]
  - Dyskinesia [Unknown]
  - Gait disturbance [Unknown]
  - Grunting [Unknown]
  - Fall [Unknown]
